FAERS Safety Report 18699185 (Version 3)
Quarter: 2021Q1

REPORT INFORMATION
  Report Type: Spontaneous
  Country: US (occurrence: US)
  Receive Date: 20210104
  Receipt Date: 20210119
  Transmission Date: 20210419
  Serious: No
  Sender: FDA-Public Use
  Company Number: US-PFIZER INC-2020365331

PATIENT
  Age: 71 Year
  Sex: Male
  Weight: 81.65 kg

DRUGS (3)
  1. INLYTA [Suspect]
     Active Substance: AXITINIB
     Dosage: 1 MG
  2. INLYTA [Suspect]
     Active Substance: AXITINIB
     Indication: METASTASES TO LUNG
     Dosage: 3 MG (30?DAY SUPPLY)
  3. INLYTA [Suspect]
     Active Substance: AXITINIB
     Indication: RENAL CANCER
     Dosage: 5 MG, 1X/DAY (5MG TABLETS ONCE A DAY)
     Dates: end: 202007

REACTIONS (2)
  - Blister [Not Recovered/Not Resolved]
  - Pain in extremity [Recovering/Resolving]
